FAERS Safety Report 16237795 (Version 2)
Quarter: 2019Q3

REPORT INFORMATION
  Report Type: Spontaneous
  Country: CA (occurrence: CA)
  Receive Date: 20190425
  Receipt Date: 20190829
  Transmission Date: 20191004
  Serious: Yes (Life-Threatening, Other)
  Sender: FDA-Public Use
  Company Number: CA-TEVA-2019-CA-1040866

PATIENT
  Age: 52 Year
  Sex: Female

DRUGS (15)
  1. ACETAMINOPHEN W/CODEINE PHOSHATE [Suspect]
     Active Substance: ACETAMINOPHEN\CODEINE PHOSPHATE
     Indication: PAIN
     Route: 065
  2. DICLOFENAC SODIUM. [Suspect]
     Active Substance: DICLOFENAC SODIUM
     Indication: PAIN
     Dosage: FORM OF ADMIN :NOT SPECIFIED
     Route: 065
  3. TYLENOL WITH CODEINE [Suspect]
     Active Substance: ACETAMINOPHEN\CODEINE PHOSPHATE
     Indication: PAIN
     Route: 065
  4. DICLOFENAC POTASSIUM. [Suspect]
     Active Substance: DICLOFENAC POTASSIUM
     Indication: PAIN
     Route: 065
  5. ACETAMINOPHEN W/HYDROCODONE [Suspect]
     Active Substance: ACETAMINOPHEN\HYDROCODONE
     Indication: PAIN
     Route: 065
  6. MORPHINE [Suspect]
     Active Substance: MORPHINE
     Indication: PAIN
     Dosage: FORM OF ADMIN :NOT SPECIFIED
     Route: 065
  7. HYDROCODONE BITARTRATE. [Suspect]
     Active Substance: HYDROCODONE BITARTRATE
     Indication: PAIN
     Route: 065
  8. CODEINE [Suspect]
     Active Substance: CODEINE
     Indication: PAIN
     Route: 065
  9. CELEBREX [Suspect]
     Active Substance: CELECOXIB
     Indication: PAIN
     Route: 065
  10. OXYCONTIN [Suspect]
     Active Substance: OXYCODONE HYDROCHLORIDE
     Indication: PAIN
     Dosage: FORM OF ADMIN.(EXTENDED RELEASE)
     Route: 065
  11. HYDROCODONE [Suspect]
     Active Substance: HYDROCODONE
     Indication: PAIN
     Route: 065
  12. MORPHINE SULFATE INJECTION 1MG/ML [Suspect]
     Active Substance: MORPHINE SULFATE
     Indication: PAIN
     Route: 065
  13. MORPHINE SULPHATE INJECTION USP [Suspect]
     Active Substance: MORPHINE SULFATE
     Indication: PAIN
     Route: 030
  14. PARACETAMOL [Suspect]
     Active Substance: ACETAMINOPHEN
     Indication: PAIN
     Dosage: FORM OF ADMIN :NOT SPECIFIED
     Route: 065
  15. BUTRANS [Suspect]
     Active Substance: BUPRENORPHINE
     Indication: PAIN
     Dosage: FORM OF ADMIN:PATCH
     Route: 065

REACTIONS (13)
  - Gastric ulcer [Unknown]
  - Suicidal ideation [Unknown]
  - Condition aggravated [Unknown]
  - Bedridden [Unknown]
  - Gastric disorder [Unknown]
  - Overdose [Unknown]
  - Mental disorder [Unknown]
  - Confusional state [Unknown]
  - Mental impairment [Unknown]
  - Overweight [Unknown]
  - Arthralgia [Unknown]
  - Back pain [Unknown]
  - Dysphagia [Unknown]
